FAERS Safety Report 13622406 (Version 1)
Quarter: 2017Q2

REPORT INFORMATION
  Report Type: Spontaneous
  Country: US (occurrence: US)
  Receive Date: 20170607
  Receipt Date: 20170607
  Transmission Date: 20170830
  Serious: No
  Sender: FDA-Public Use
  Company Number: US-ROCHE-1792488

PATIENT
  Sex: Female

DRUGS (9)
  1. ESTRADIOL. [Concomitant]
     Active Substance: ESTRADIOL
  2. CYMBALTA [Concomitant]
     Active Substance: DULOXETINE HYDROCHLORIDE
  3. KLONOPIN [Suspect]
     Active Substance: CLONAZEPAM
     Indication: FIBROMYALGIA
     Dosage: AT BEDTIME
     Route: 048
     Dates: start: 20160516
  4. KLONOPIN [Suspect]
     Active Substance: CLONAZEPAM
     Indication: DEPRESSION
     Dosage: AT BEDTIME
     Route: 048
     Dates: start: 20141203, end: 20160515
  5. LISINOPRIL. [Concomitant]
     Active Substance: LISINOPRIL
  6. SAVELLA [Concomitant]
     Active Substance: MILNACIPRAN HYDROCHLORIDE
  7. ZOCOR [Concomitant]
     Active Substance: SIMVASTATIN
  8. LYRICA [Concomitant]
     Active Substance: PREGABALIN
  9. PROGESTERONE. [Concomitant]
     Active Substance: PROGESTERONE

REACTIONS (15)
  - Depression [Unknown]
  - Heart rate increased [Unknown]
  - Anxiety [Unknown]
  - Nausea [Unknown]
  - Abnormal behaviour [Unknown]
  - Hypoaesthesia [Unknown]
  - Irritability [Unknown]
  - Restless legs syndrome [Unknown]
  - Pain [Unknown]
  - Drug withdrawal syndrome [Unknown]
  - Tremor [Unknown]
  - Lethargy [Unknown]
  - Restlessness [Unknown]
  - Insomnia [Unknown]
  - Feeling of body temperature change [Unknown]
